FAERS Safety Report 9419582 (Version 1)
Quarter: 2013Q3

REPORT INFORMATION
  Report Type: Spontaneous
  Country: US (occurrence: None)
  Receive Date: 20130723
  Receipt Date: 20130723
  Transmission Date: 20140515
  Serious: Yes (Other)
  Sender: FDA-Public Use
  Company Number: AUR-APL-2013-05994

PATIENT
  Age: 70 Year
  Sex: Male

DRUGS (3)
  1. PRAMIPEXOLE [Suspect]
     Indication: PARKINSON^S DISEASE
  2. SINEMET [Suspect]
     Indication: PARKINSON^S DISEASE
     Dosage: 650/175MG DAILY
  3. COCAINE (COCAINE) [Suspect]
     Indication: PRODUCT USED FOR UNKNOWN INDICATION

REACTIONS (6)
  - Hypersexuality [None]
  - Aggression [None]
  - Drug abuse [None]
  - Obsessive-compulsive disorder [None]
  - Anxiety [None]
  - Abnormal behaviour [None]
